FAERS Safety Report 6644367-2 (Version None)
Quarter: 2010Q1

REPORT INFORMATION
  Report Type: 
  Country: None (occurrence: None)
  Receive Date: 20100322
  Receipt Date: 20100315
  Transmission Date: 20100710
  Serious: Yes (Hospitalization)
  Sender: FDA-Public Use
  Company Number: IT-ROCHE-672454

PATIENT
  Sex: Female

DRUGS (7)
  1. XELODA [Suspect]
     Indication: COLON CANCER
     Dosage: FREQUENCY: CYCLE.
     Route: 048
     Dates: start: 20091023, end: 20091029
  2. OXALIPLATIN [Suspect]
     Indication: COLON CANCER
     Dosage: FREQUENCY REPORTED AS CYCLE. DRUG REPORTED AS OXALIPLATINO EBEWE.
     Route: 042
     Dates: start: 20091002, end: 20091023
  3. PANTOPRAZOLE [Concomitant]
     Route: 048
  4. CLONAZEPAM [Concomitant]
  5. PREDNISONE [Concomitant]
  6. CALCITRIOL [Concomitant]
     Route: 048
  7. ALENDRONIC ACID [Concomitant]
     Route: 048

REACTIONS (10)
  - ABDOMINAL PAIN [None]
  - ABDOMINAL PAIN UPPER [None]
  - GASTRITIS [None]
  - GASTROINTESTINAL HYPOMOTILITY [None]
  - ILEUS PARALYTIC [None]
  - OESOPHAGEAL CANDIDIASIS [None]
  - PALMAR-PLANTAR ERYTHRODYSAESTHESIA SYNDROME [None]
  - PRESYNCOPE [None]
  - SUFFOCATION FEELING [None]
  - VOMITING [None]
